FAERS Safety Report 16564904 (Version 1)
Quarter: 2019Q3

REPORT INFORMATION
  Report Type: Spontaneous
  Country: IT (occurrence: IT)
  Receive Date: 20190712
  Receipt Date: 20190712
  Transmission Date: 20191004
  Serious: Yes (Hospitalization, Other)
  Sender: FDA-Public Use
  Company Number: IT-MICRO LABS LIMITED-ML2019-01611

PATIENT
  Age: 79 Year

DRUGS (4)
  1. PREDNISONE. [Suspect]
     Active Substance: PREDNISONE
     Indication: HORMONE-REFRACTORY PROSTATE CANCER
  2. REPAGLINIDE. [Interacting]
     Active Substance: REPAGLINIDE
     Indication: TYPE 2 DIABETES MELLITUS
  3. SIMVASTATIN. [Suspect]
     Active Substance: SIMVASTATIN
  4. ABIRATERONE. [Interacting]
     Active Substance: ABIRATERONE ACETATE
     Indication: HORMONE-REFRACTORY PROSTATE CANCER

REACTIONS (2)
  - Drug interaction [Unknown]
  - Hypoglycaemia [Unknown]
